FAERS Safety Report 14516066 (Version 1)
Quarter: 2018Q1

REPORT INFORMATION
  Report Type: Spontaneous
  Country: US (occurrence: US)
  Receive Date: 20180211
  Receipt Date: 20180211
  Transmission Date: 20180509
  Serious: Yes (Other)
  Sender: FDA-Public Use
  Company Number: US-TESARO, INC-US-2018TSO00639

PATIENT

DRUGS (1)
  1. ZEJULA [Suspect]
     Active Substance: NIRAPARIB
     Indication: PRODUCT USED FOR UNKNOWN INDICATION
     Dosage: 100 MG, UNK
     Route: 065

REACTIONS (14)
  - Renal failure [Unknown]
  - Intentional underdose [Not Recovered/Not Resolved]
  - Stomatitis [Unknown]
  - Headache [Unknown]
  - Palpitations [Unknown]
  - Constipation [Unknown]
  - Nervousness [Unknown]
  - Heart rate increased [Unknown]
  - Hypertension [Unknown]
  - Insomnia [Unknown]
  - Carbohydrate antigen 125 increased [Unknown]
  - Renal impairment [Unknown]
  - Alopecia [Unknown]
  - Anxiety [Unknown]
